FAERS Safety Report 23444110 (Version 1)
Quarter: 2024Q1

REPORT INFORMATION
  Report Type: Report from Study
  Country: IN (occurrence: IN)
  Receive Date: 20240125
  Receipt Date: 20240125
  Transmission Date: 20240410
  Serious: Yes (Death, Hospitalization)
  Sender: FDA-Public Use
  Company Number: IN-002147023-NVSC2024IN015586

PATIENT
  Age: 84 Year
  Sex: Male

DRUGS (1)
  1. BROLUCIZUMAB [Suspect]
     Active Substance: BROLUCIZUMAB
     Indication: Neovascular age-related macular degeneration
     Dosage: 0.05 ML, AS NEEDED
     Route: 047
     Dates: start: 20231031, end: 20240110

REACTIONS (2)
  - Accidental death [Fatal]
  - Injury [Unknown]

NARRATIVE: CASE EVENT DATE: 20240110
